FAERS Safety Report 11224042 (Version 1)
Quarter: 2015Q2

REPORT INFORMATION
  Report Type: Spontaneous
  Country: FR (occurrence: None)
  Receive Date: 20150625
  Receipt Date: 20150625
  Transmission Date: 20150821
  Serious: Yes (Other)
  Sender: FDA-Public Use
  Company Number: 8030878

PATIENT
  Age: 48 Year
  Sex: Male

DRUGS (2)
  1. LEVOTHYROX (LEVOTHYROXINE SODIUM)  (LEVOTHYROXINE SODIUM) [Suspect]
     Active Substance: LEVOTHYROXINE SODIUM
     Indication: POST PROCEDURAL HYPOTHYROIDISM
  2. L-THYROXINE SERB (LEVOTHYROXINE SODIUM) [Suspect]
     Active Substance: LEVOTHYROXINE
     Indication: POST PROCEDURAL HYPOTHYROIDISM
     Dates: end: 201506

REACTIONS (3)
  - Angioedema [None]
  - General physical health deterioration [None]
  - Drug hypersensitivity [None]
